FAERS Safety Report 18413210 (Version 1)
Quarter: 2020Q4

REPORT INFORMATION
  Report Type: Report from Study
  Country: US (occurrence: US)
  Receive Date: 20201021
  Receipt Date: 20201021
  Transmission Date: 20210114
  Serious: Yes (Other)
  Sender: FDA-Public Use
  Company Number: US-GILEAD-2020-0500260

PATIENT
  Age: 87 Year
  Sex: Female

DRUGS (15)
  1. MACRODANTIN [Concomitant]
     Active Substance: NITROFURANTOIN
  2. ALBUTOL [SALBUTAMOL SULFATE] [Concomitant]
  3. IDELALISIB [Suspect]
     Active Substance: IDELALISIB
     Indication: CHRONIC LYMPHOCYTIC LEUKAEMIA
     Dosage: 100 MG, QD
     Route: 048
     Dates: start: 20180119
  4. PERI-COLACE [CASANTHRANOL;DOCUSATE SODIUM] [Concomitant]
  5. MEPRON [Concomitant]
     Active Substance: ATOVAQUONE
  6. COMPAZINE [PROCHLORPERAZINE EDISYLATE] [Concomitant]
     Active Substance: PROCHLORPERAZINE EDISYLATE
  7. ATACAND [Concomitant]
     Active Substance: CANDESARTAN CILEXETIL
  8. PRILOSEC [Concomitant]
     Active Substance: OMEPRAZOLE MAGNESIUM
  9. FLONASE [Concomitant]
     Active Substance: FLUTICASONE PROPIONATE
  10. MYCOSTATIN [Concomitant]
     Active Substance: NYSTATIN
  11. ZOFRAN [Concomitant]
     Active Substance: ONDANSETRON HYDROCHLORIDE
  12. ZITHROMAX [Concomitant]
     Active Substance: AZITHROMYCIN DIHYDRATE
  13. ZOVIRAX [Concomitant]
     Active Substance: ACYCLOVIR
  14. LEUKERAN [Concomitant]
     Active Substance: CHLORAMBUCIL
  15. COUMADIN [Concomitant]
     Active Substance: WARFARIN SODIUM

REACTIONS (3)
  - Arthralgia [Unknown]
  - Off label use [Unknown]
  - Squamous cell carcinoma [Unknown]
